FAERS Safety Report 17428171 (Version 1)
Quarter: 2020Q1

REPORT INFORMATION
  Report Type: Spontaneous
  Country: US (occurrence: US)
  Receive Date: 20200131
  Receipt Date: 20200131
  Transmission Date: 20200409
  Serious: Yes (Disabling)
  Sender: FDA-Public Use
  Company Number: None

PATIENT
  Age: 65 Year
  Sex: Female
  Weight: 63.5 kg

DRUGS (1)
  1. PROLIA [Suspect]
     Active Substance: DENOSUMAB
     Indication: OSTEOPOROSIS
     Dosage: ?          QUANTITY:1 SHOT EVERY 6 MON;OTHER FREQUENCY:EVERY SIX MONTHS;OTHER ROUTE:INJECTION IN MY RIGHT ARM?

REACTIONS (2)
  - Pain in extremity [None]
  - Walking aid user [None]

NARRATIVE: CASE EVENT DATE: 20191209
